FAERS Safety Report 7434834-6 (Version None)
Quarter: 2011Q2

REPORT INFORMATION
  Report Type: 
  Country: None (occurrence: None)
  Receive Date: 20110425
  Receipt Date: 20110415
  Transmission Date: 20111010
  Serious: Yes (Hospitalization)
  Sender: FDA-Public Use
  Company Number: BR-ASTRAZENECA-2011SE21994

PATIENT
  Sex: Male

DRUGS (1)
  1. SELOZOK [Suspect]
     Route: 048

REACTIONS (1)
  - COMA [None]
